FAERS Safety Report 13534648 (Version 3)
Quarter: 2017Q2

REPORT INFORMATION
  Report Type: Report from Study
  Country: IT (occurrence: IT)
  Receive Date: 20170511
  Receipt Date: 20170621
  Transmission Date: 20170830
  Serious: Yes (Hospitalization)
  Sender: FDA-Public Use
  Company Number: IT-ROCHE-1930385

PATIENT
  Age: 31 Year
  Sex: Female
  Weight: 52 kg

DRUGS (11)
  1. PARACETAMOL [Concomitant]
     Active Substance: ACETAMINOPHEN
     Route: 065
     Dates: start: 20161109, end: 20161109
  2. METHYLPREDNISOLONE. [Suspect]
     Active Substance: METHYLPREDNISOLONE
     Indication: PREMEDICATION
     Dosage: LAST DOSE PRIOR TO AE ONSET 22/NOV/2016
     Route: 042
     Dates: start: 20161109, end: 20161109
  3. PARACETAMOL [Concomitant]
     Active Substance: ACETAMINOPHEN
     Route: 065
     Dates: start: 20161122, end: 20161122
  4. MINULET [Concomitant]
     Active Substance: ETHINYL ESTRADIOL\GESTODENE
     Indication: CONTRACEPTION
     Route: 048
     Dates: start: 20161030
  5. SPERMICIDES [Concomitant]
     Indication: CONTRACEPTION
     Route: 050
     Dates: start: 20161030
  6. TRIMETON (ITALY) [Concomitant]
     Route: 065
     Dates: start: 20161122, end: 20161122
  7. TACHIPIRIN [Concomitant]
     Route: 065
     Dates: start: 20170517, end: 20170517
  8. OCRELIZUMAB [Suspect]
     Active Substance: OCRELIZUMAB
     Indication: RELAPSING-REMITTING MULTIPLE SCLEROSIS
     Dosage: LAST DOSE PRIOR TO AE ONSET 22/NOV/2016, 300 MG
     Route: 042
     Dates: start: 20161109
  9. METHYLPREDNISOLONE. [Suspect]
     Active Substance: METHYLPREDNISOLONE
     Route: 042
     Dates: start: 20170517, end: 20170517
  10. TRIMETON (ITALY) [Concomitant]
     Route: 065
     Dates: start: 20161109, end: 20161109
  11. TRIMETON (ITALY) [Concomitant]
     Route: 065
     Dates: start: 20170517, end: 20170517

REACTIONS (1)
  - Sinusitis [Recovered/Resolved]

NARRATIVE: CASE EVENT DATE: 20170420
